FAERS Safety Report 6726690-6 (Version None)
Quarter: 2010Q2

REPORT INFORMATION
  Report Type: 
  Country: None (occurrence: None)
  Receive Date: 20100514
  Receipt Date: 20100512
  Transmission Date: 20101027
  Serious: Yes (Hospitalization, Disabling, Other)
  Sender: FDA-Public Use
  Company Number: US-MERCK-1002USA03616

PATIENT
  Age: 46 Year
  Sex: Female

DRUGS (8)
  1. FOSAMAX [Suspect]
     Indication: OSTEOPOROSIS
     Route: 048
     Dates: start: 20070310, end: 20071220
  2. FOSAMAX [Suspect]
     Route: 048
  3. FOSAMAX [Suspect]
     Indication: OSTEOPENIA
     Route: 048
     Dates: start: 20070310, end: 20071220
  4. FOSAMAX [Suspect]
     Route: 048
  5. SIMVASTATIN [Concomitant]
     Indication: BLOOD CHOLESTEROL INCREASED
     Route: 065
     Dates: start: 20070304, end: 20071215
  6. AZITHROMYCIN [Concomitant]
     Indication: BACTERIAL INFECTION
     Route: 065
     Dates: start: 20060109, end: 20070617
  7. ACTONEL [Suspect]
     Indication: OSTEOPOROSIS
     Route: 065
     Dates: start: 20030726, end: 20060530
  8. ACTONEL [Suspect]
     Indication: OSTEOPENIA
     Route: 065
     Dates: start: 20030726, end: 20060530

REACTIONS (13)
  - ADVERSE EVENT [None]
  - ANXIETY [None]
  - BACTERIAL INFECTION [None]
  - DEPRESSION [None]
  - EAR, NOSE AND THROAT EXAMINATION ABNORMAL [None]
  - EXOSTOSIS [None]
  - IMPAIRED HEALING [None]
  - MOUTH INJURY [None]
  - MUCOSAL ULCERATION [None]
  - ORAL INFECTION [None]
  - OSTEOMYELITIS [None]
  - OSTEONECROSIS OF JAW [None]
  - RESPIRATORY DISORDER [None]
